FAERS Safety Report 6717589-X (Version None)
Quarter: 2010Q2

REPORT INFORMATION
  Report Type: 
  Country: None (occurrence: None)
  Receive Date: 20100505
  Receipt Date: 20100427
  Transmission Date: 20101027
  Serious: Yes (Hospitalization)
  Sender: FDA-Public Use
  Company Number: ALL1-2010-02450

PATIENT
  Age: 41 Year
  Sex: Male

DRUGS (1)
  1. FOSRENOL [Suspect]
     Indication: HYPERPHOSPHATAEMIA
     Dosage: MG,(506DOSES WEEKLY) OTHER, ORAL
     Route: 048
     Dates: start: 20060101

REACTIONS (6)
  - CEREBROVASCULAR ACCIDENT [None]
  - DIABETIC COMPLICATION [None]
  - DIARRHOEA [None]
  - FLATULENCE [None]
  - MASTICATION DISORDER [None]
  - TREATMENT NONCOMPLIANCE [None]
